FAERS Safety Report 7982096-3 (Version None)
Quarter: 2011Q4

REPORT INFORMATION
  Report Type: 
  Country: None (occurrence: None)
  Receive Date: 20111215
  Receipt Date: 20111212
  Transmission Date: 20120403
  Serious: Yes (Death, Hospitalization, Other)
  Sender: FDA-Public Use
  Company Number: US-CELGENEUS-163-21880-11091825

PATIENT
  Sex: Male

DRUGS (20)
  1. DIAVAN [Concomitant]
     Dosage: 80 MILLIGRAM
     Route: 048
  2. WARFARIN SODIUM [Concomitant]
     Dosage: 7.5 MILLIGRAM
     Route: 065
  3. MORPHINE [Concomitant]
     Route: 065
  4. LASIX [Concomitant]
     Route: 065
  5. GELNIQUE [Concomitant]
     Dosage: 10 PERCENT
     Route: 065
  6. PROSCAR [Concomitant]
     Route: 065
  7. FINASTERIDE [Concomitant]
     Dosage: 5 MILLIGRAM
     Route: 065
  8. COREG CR [Concomitant]
     Dosage: 20 MILLIGRAM
     Route: 048
  9. DIGOXIN [Concomitant]
     Dosage: 125 MICROGRAM
     Route: 048
  10. IMIPRAMINE [Concomitant]
     Dosage: 25 MILLIGRAM
     Route: 065
  11. ZOSYN [Concomitant]
     Route: 065
  12. ALLOPURINOL [Concomitant]
     Dosage: 10 MILLIGRAM
     Route: 048
  13. OXYCODONE HCL [Concomitant]
     Route: 065
  14. PROBIOTIC [Concomitant]
     Route: 065
  15. MULTI-VITAMINS [Concomitant]
     Route: 065
  16. ULTRAM [Concomitant]
     Route: 065
  17. NEURONTIN [Concomitant]
     Route: 065
  18. REVLIMID [Suspect]
     Dosage: 10 MILLIGRAM
     Route: 048
     Dates: start: 20110524, end: 20110901
  19. LANOXIN [Concomitant]
     Route: 065
  20. UROXATRAL [Concomitant]
     Dosage: 10 MILLIGRAM
     Route: 065

REACTIONS (6)
  - HEPATIC CIRRHOSIS [None]
  - PLATELET COUNT DECREASED [None]
  - NO THERAPEUTIC RESPONSE [None]
  - HEPATORENAL FAILURE [None]
  - MYELODYSPLASTIC SYNDROME [None]
  - PNEUMONIA [None]
